FAERS Safety Report 7209167-3 (Version None)
Quarter: 2011Q1

REPORT INFORMATION
  Report Type: 
  Country: None (occurrence: None)
  Receive Date: 20110104
  Receipt Date: 20100128
  Transmission Date: 20110831
  Serious: Yes (Other)
  Sender: FDA-Public Use
  Company Number: NL-TEVA-261317ISR

PATIENT
  Age: 33 Year
  Sex: Male

DRUGS (3)
  1. BLEOMYCIN SULFATE [Suspect]
  2. CISPLATIN [Suspect]
  3. ETOPOSIDE [Suspect]

REACTIONS (3)
  - SARCOIDOSIS [None]
  - RETROPERITONEAL LYMPHADENOPATHY [None]
  - TERATOMA [None]
